FAERS Safety Report 7335196-5 (Version None)
Quarter: 2011Q1

REPORT INFORMATION
  Report Type: 
  Country: None (occurrence: None)
  Receive Date: 20110307
  Receipt Date: 20110301
  Transmission Date: 20110831
  Serious: Yes (Other)
  Sender: FDA-Public Use
  Company Number: US-PFIZER INC-2011044789

PATIENT
  Sex: Male
  Weight: 79.365 kg

DRUGS (1)
  1. VIAGRA [Suspect]
     Indication: INTENTIONAL DRUG MISUSE
     Dosage: UNK
     Dates: start: 20110301

REACTIONS (2)
  - ERECTION INCREASED [None]
  - INTENTIONAL DRUG MISUSE [None]
